FAERS Safety Report 4690149-0 (Version None)
Quarter: 2005Q2

REPORT INFORMATION
  Report Type: 
  Country: None (occurrence: None)
  Receive Date: 20050613
  Receipt Date: 20050606
  Transmission Date: 20051028
  Serious: Yes (Other)
  Sender: FDA-Public Use
  Company Number: 2005-06-0280

PATIENT
  Age: 28 Year
  Sex: Female

DRUGS (4)
  1. RIBAVIRIN CAPSULES [Suspect]
     Indication: HEPATITIS C
     Dosage: SEE IMAGE
     Route: 048
     Dates: start: 19990201
  2. RIBAVIRIN CAPSULES [Suspect]
     Indication: HEPATITIS C
     Dosage: SEE IMAGE
     Route: 048
     Dates: start: 19990201
  3. RIBAVIRIN CAPSULES [Suspect]
     Indication: HEPATITIS C
     Dosage: SEE IMAGE
     Route: 048
     Dates: start: 19990401
  4. INTERFERON ALFA-2B INJECTABLE [Suspect]
     Indication: HEPATITIS C
     Dosage: 3 MU TIW
     Dates: start: 19990201

REACTIONS (11)
  - ASTHENIA [None]
  - COUGH [None]
  - DYSPNOEA [None]
  - ELECTROCARDIOGRAM REPOLARISATION ABNORMALITY [None]
  - NEUTROPENIA [None]
  - NORMOCHROMIC NORMOCYTIC ANAEMIA [None]
  - OEDEMA PERIPHERAL [None]
  - PERICARDIAL EFFUSION [None]
  - PERICARDITIS [None]
  - POLYNEUROPATHY [None]
  - WEIGHT INCREASED [None]
